FAERS Safety Report 9438896 (Version 1)
Quarter: 2013Q3

REPORT INFORMATION
  Report Type: Spontaneous
  Country: US (occurrence: US)
  Receive Date: 20130802
  Receipt Date: 20130802
  Transmission Date: 20140515
  Serious: No
  Sender: FDA-Public Use
  Company Number: 2013SP002072

PATIENT
  Age: 23 Year
  Sex: Female

DRUGS (2)
  1. LATUDA [Suspect]
     Indication: PSYCHOTIC DISORDER
     Route: 048
     Dates: start: 20111212, end: 20130704
  2. BUPROPION [Concomitant]
     Indication: DEPRESSION
     Dates: start: 20111212

REACTIONS (2)
  - Facial pain [Recovered/Resolved]
  - Facial spasm [Recovered/Resolved]
